FAERS Safety Report 7008136-6 (Version None)
Quarter: 2010Q3

REPORT INFORMATION
  Report Type: 
  Country: None (occurrence: None)
  Receive Date: 20100922
  Receipt Date: 20100913
  Transmission Date: 20110219
  Serious: Yes (Other)
  Sender: FDA-Public Use
  Company Number: GB-AMGEN-QUU439165

PATIENT

DRUGS (1)
  1. ENBREL [Suspect]
     Indication: RHEUMATOID ARTHRITIS
     Dosage: UNKNOWN

REACTIONS (4)
  - CONDITION AGGRAVATED [None]
  - DEVICE MALFUNCTION [None]
  - DRUG DOSE OMISSION [None]
  - RHEUMATOID ARTHRITIS [None]
